FAERS Safety Report 16701943 (Version 1)
Quarter: 2019Q3

REPORT INFORMATION
  Report Type: Spontaneous
  Country: FR (occurrence: FR)
  Receive Date: 20190814
  Receipt Date: 20190814
  Transmission Date: 20191004
  Serious: Yes (Other)
  Sender: FDA-Public Use
  Company Number: FR-PFIZER INC-2019344489

PATIENT
  Age: 71 Year
  Sex: Female

DRUGS (3)
  1. MEDROL [Suspect]
     Active Substance: METHYLPREDNISOLONE
     Dosage: 2 DF, DAILY
  2. LYNPARZA [Interacting]
     Active Substance: OLAPARIB
     Indication: OVARIAN CANCER
     Dosage: 800 MG, DAILY
     Route: 048
     Dates: start: 2017
  3. MEDROL [Interacting]
     Active Substance: METHYLPREDNISOLONE
     Dosage: 32 MG, 1X/DAY

REACTIONS (4)
  - Arthralgia [Not Recovered/Not Resolved]
  - Subdural haematoma [Unknown]
  - Drug interaction [Unknown]
  - Urinary tract infection [Not Recovered/Not Resolved]

NARRATIVE: CASE EVENT DATE: 201902
